FAERS Safety Report 5528032-0 (Version None)
Quarter: 2007Q4

REPORT INFORMATION
  Report Type: 
  Country: None (occurrence: None)
  Receive Date: 20071128
  Receipt Date: 20071121
  Transmission Date: 20080405
  Serious: Yes (Other)
  Sender: FDA-Public Use
  Company Number: US-WYE-H01370507

PATIENT
  Age: 50 Year
  Sex: Female
  Weight: 60.38 kg

DRUGS (4)
  1. INDERAL [Suspect]
     Indication: MIGRAINE PROPHYLAXIS
     Dosage: DOSE AND FREQUENCY NOT SPECIFIED
     Route: 065
     Dates: end: 20070401
  2. IMITREX [Concomitant]
     Indication: HEADACHE
     Dosage: DOSE AND FREQUENCY NOT SPECIFIED
     Route: 065
  3. TOPAMAX [Interacting]
     Indication: MIGRAINE PROPHYLAXIS
     Route: 048
     Dates: start: 20060101
  4. TOPAMAX [Interacting]
     Indication: TRIGEMINAL NEURALGIA

REACTIONS (10)
  - ALOPECIA [None]
  - APHASIA [None]
  - BLOOD PRESSURE SYSTOLIC DECREASED [None]
  - COGNITIVE DISORDER [None]
  - DRUG INTERACTION [None]
  - FATIGUE [None]
  - NAIL DISCOLOURATION [None]
  - NAIL DISORDER [None]
  - PERIPHERAL COLDNESS [None]
  - SOMNOLENCE [None]
